FAERS Safety Report 12452836 (Version 1)
Quarter: 2016Q2

REPORT INFORMATION
  Report Type: Report from Study
  Country: US (occurrence: US)
  Receive Date: 20160609
  Receipt Date: 20160609
  Transmission Date: 20160815
  Serious: Yes (Hospitalization, Other)
  Sender: FDA-Public Use
  Company Number: US-ARIAD PHARMACEUTICALS, INC-2016US006002

PATIENT
  Sex: Male

DRUGS (2)
  1. ICLUSIG [Suspect]
     Active Substance: PONATINIB
     Indication: ACUTE LYMPHOCYTIC LEUKAEMIA
     Dosage: 15 MG, QD
     Route: 048
     Dates: start: 20151228
  2. CHEMOTHERAPEUTICS [Concomitant]
     Active Substance: UNSPECIFIED INGREDIENT
     Indication: NEOPLASM PROGRESSION

REACTIONS (8)
  - Neuropathy peripheral [Unknown]
  - CSF volume increased [Not Recovered/Not Resolved]
  - Influenza [Not Recovered/Not Resolved]
  - Chemotherapy [Unknown]
  - Headache [Not Recovered/Not Resolved]
  - Malaise [Unknown]
  - Brain oedema [Not Recovered/Not Resolved]
  - Neoplasm progression [Unknown]
